FAERS Safety Report 10312245 (Version 2)
Quarter: 2014Q3

REPORT INFORMATION
  Report Type: Spontaneous
  Country: US (occurrence: AU)
  Receive Date: 20140718
  Receipt Date: 20140805
  Transmission Date: 20150326
  Serious: Yes (Hospitalization, Other)
  Sender: FDA-Public Use
  Company Number: 2014SP004132

PATIENT
  Age: 53 Year
  Sex: Female
  Weight: 70.2 kg

DRUGS (12)
  1. FLUOROURACIL. [Suspect]
     Active Substance: FLUOROURACIL
     Indication: COLON CANCER
     Route: 042
     Dates: start: 20130515, end: 20140626
  2. BEVACIZUMAB [Suspect]
     Active Substance: BEVACIZUMAB
     Indication: COLON CANCER
     Route: 042
     Dates: start: 20130515, end: 20140626
  3. MAXOLON [Concomitant]
     Active Substance: METOCLOPRAMIDE HYDROCHLORIDE
     Dates: start: 20130617
  4. NALOXONE HYDROCHLORIDE. [Concomitant]
     Active Substance: NALOXONE HYDROCHLORIDE
     Dates: start: 20140526
  5. PANTOPRAZOLE [Concomitant]
     Active Substance: PANTOPRAZOLE SODIUM
     Dates: start: 20140601
  6. SALMETEROL XINAFOATE [Concomitant]
     Active Substance: SALMETEROL XINAFOATE
     Dates: start: 2002
  7. OXYCODONE HYDROCHLORIDE. [Concomitant]
     Active Substance: OXYCODONE HYDROCHLORIDE
     Dates: start: 20140526
  8. IRINOTECAN [Suspect]
     Active Substance: IRINOTECAN
     Indication: COLON CANCER
     Route: 042
     Dates: start: 20130123, end: 20140626
  9. FLUTICASONE PROPIONATE. [Concomitant]
     Active Substance: FLUTICASONE PROPIONATE
     Dates: start: 2002
  10. PARACETAMOL [Concomitant]
     Active Substance: ACETAMINOPHEN
     Dates: start: 20130507
  11. FOLINIC ACID [Suspect]
     Active Substance: LEUCOVORIN
     Indication: COLON CANCER
     Route: 042
     Dates: start: 20130515, end: 20140626
  12. SALBUTAMOL SULFATE [Concomitant]
     Active Substance: ALBUTEROL SULFATE
     Dates: start: 2002

REACTIONS (4)
  - Flank pain [Recovered/Resolved]
  - Urinary tract infection [Recovered/Resolved]
  - Vomiting [Recovered/Resolved]
  - Nausea [Recovered/Resolved]

NARRATIVE: CASE EVENT DATE: 20140124
